FAERS Safety Report 4939108-0 (Version None)
Quarter: 2006Q1

REPORT INFORMATION
  Report Type: 
  Country: None (occurrence: None)
  Receive Date: 20060306
  Receipt Date: 20060220
  Transmission Date: 20060701
  Serious: Yes (Hospitalization)
  Sender: FDA-Public Use
  Company Number: A-US2006-11678

PATIENT
  Age: 39 Year
  Sex: Female

DRUGS (8)
  1. TRACLEER [Suspect]
     Indication: PULMONARY HYPERTENSION
     Dosage: 125 MG, BID; ORAL;
     Route: 048
     Dates: start: 20040901
  2. LASIX [Concomitant]
  3. ALDACTONE [Concomitant]
  4. PLAQUENIL [Concomitant]
  5. CELLCEPT [Concomitant]
  6. SALMETEROL [Concomitant]
  7. FLUTICASONE PROPIONATE [Concomitant]
  8. DIGOXIN [Concomitant]

REACTIONS (11)
  - AMMONIA INCREASED [None]
  - AUTOIMMUNE HEPATITIS [None]
  - ESCHERICHIA URINARY TRACT INFECTION [None]
  - FLUID OVERLOAD [None]
  - GALLBLADDER OEDEMA [None]
  - HEPATIC ATROPHY [None]
  - HEPATIC CIRRHOSIS [None]
  - HEPATIC CONGESTION [None]
  - HEPATIC NECROSIS [None]
  - HYPOTENSION [None]
  - INTERNATIONAL NORMALISED RATIO INCREASED [None]
